FAERS Safety Report 6426279-2 (Version None)
Quarter: 2009Q4

REPORT INFORMATION
  Report Type: 
  Country: None (occurrence: None)
  Receive Date: 20091104
  Receipt Date: 20091026
  Transmission Date: 20100525
  Serious: Yes (Hospitalization, Other)
  Sender: FDA-Public Use
  Company Number: US-ELI_LILLY_AND_COMPANY-US200910006944

PATIENT
  Age: 75 Year
  Sex: Female

DRUGS (2)
  1. GEMZAR [Suspect]
     Indication: LEIOMYOSARCOMA
  2. TAXOTERE [Concomitant]
     Indication: LEIOMYOSARCOMA

REACTIONS (5)
  - ASTHENIA [None]
  - BACK PAIN [None]
  - DYSPNOEA [None]
  - LUNG DISORDER [None]
  - MALAISE [None]
